FAERS Safety Report 16706181 (Version 3)
Quarter: 2019Q3

REPORT INFORMATION
  Report Type: Spontaneous
  Country: US (occurrence: US)
  Receive Date: 20190815
  Receipt Date: 20190930
  Transmission Date: 20191004
  Serious: No
  Sender: FDA-Public Use
  Company Number: US-PFIZER INC-2019349039

PATIENT
  Age: 67 Year
  Sex: Female

DRUGS (1)
  1. SKELAXIN [Suspect]
     Active Substance: METAXALONE
     Dosage: 800 MG, 2X/DAY
     Route: 048

REACTIONS (4)
  - Exostosis [Unknown]
  - Migraine [Unknown]
  - Off label use [Unknown]
  - Photophobia [Unknown]
